FAERS Safety Report 5068264-1 (Version None)
Quarter: 2006Q3

REPORT INFORMATION
  Report Type: 
  Country: None (occurrence: None)
  Receive Date: 20060802
  Receipt Date: 20050629
  Transmission Date: 20061208
  Serious: Yes (Hospitalization)
  Sender: FDA-Public Use
  Company Number: US-BRISTOL-MYERS SQUIBB COMPANY-13020367

PATIENT
  Age: 65 Year
  Sex: Male
  Weight: 75 kg

DRUGS (6)
  1. COUMADIN [Suspect]
     Indication: CEREBROVASCULAR ACCIDENT
     Dates: start: 20041101
  2. ZOCOR [Concomitant]
     Dates: start: 20040101
  3. NEXIUM [Concomitant]
  4. ECOTRIN [Concomitant]
  5. ALTACE [Concomitant]
     Dates: start: 20040101
  6. VITAMIN E [Concomitant]

REACTIONS (1)
  - RECTAL HAEMORRHAGE [None]
